FAERS Safety Report 5725504-0 (Version None)
Quarter: 2008Q2

REPORT INFORMATION
  Report Type: 
  Country: None (occurrence: None)
  Receive Date: 20080501
  Receipt Date: 20080428
  Transmission Date: 20081010
  Serious: Yes (Other)
  Sender: FDA-Public Use
  Company Number: FR-JNJFOC-20080406740

PATIENT
  Age: 17 Year
  Sex: Male

DRUGS (4)
  1. RISPERDAL [Suspect]
     Indication: PSYCHOTIC DISORDER
     Route: 048
  2. TERCIAN [Concomitant]
  3. LOVENOX [Concomitant]
     Indication: MUSCLE SPASMS
  4. BENZODIAZEPINE [Concomitant]

REACTIONS (1)
  - LEUKOPENIA [None]
